FAERS Safety Report 9415030 (Version 1)
Quarter: 2013Q3

REPORT INFORMATION
  Report Type: Report from Study
  Country: BR (occurrence: BR)
  Receive Date: 20130723
  Receipt Date: 20130723
  Transmission Date: 20140515
  Serious: Yes (Other)
  Sender: FDA-Public Use
  Company Number: PHHY2013BR078177

PATIENT
  Age: 61 Year
  Sex: Male
  Weight: 86 kg

DRUGS (7)
  1. DIOVAN [Suspect]
     Indication: HYPERTENSION
     Dosage: 1 DF, (320 MG) IN THE MORNING
     Route: 048
     Dates: end: 20130415
  2. DIOVAN [Suspect]
     Dosage: 2 DF, (80 MG)
     Dates: start: 20130719
  3. SELOZOK [Suspect]
     Indication: HYPERTENSION
     Dosage: 1 DF, (100 MG) IN THE MORNING
     Route: 048
  4. ATACAND [Suspect]
     Dosage: UNK UKN, UNK
  5. METFORMIN [Concomitant]
     Indication: DIABETES MELLITUS
     Dosage: 850 MG, UNK
  6. ACETYLSALICYLIC ACID [Concomitant]
     Indication: BLOOD DISORDER
     Dosage: UNK UKN, AFTER LUNCH/AT NIGHT
  7. ROSUVASTATIN [Concomitant]
     Dosage: 40 MG, UNK

REACTIONS (3)
  - Hypertension [Recovering/Resolving]
  - Infarction [Recovering/Resolving]
  - Venous occlusion [Recovering/Resolving]
